FAERS Safety Report 9510428 (Version 1)
Quarter: 2013Q3

REPORT INFORMATION
  Report Type: Spontaneous
  Country: CA (occurrence: CA)
  Receive Date: 20130909
  Receipt Date: 20130909
  Transmission Date: 20140515
  Serious: Yes (Hospitalization)
  Sender: FDA-Public Use
  Company Number: CA-MYLANLABS-2013S1019503

PATIENT
  Age: 29 Year
  Sex: Female

DRUGS (9)
  1. BUPROPION [Suspect]
     Indication: DRUG ABUSE
     Dosage: 1200MG DAILY (4 X 300MG TABLETS), DISSOLVED IN WATER AND INJECTED EVERY 2 TO 3 HOURS
     Route: 042
  2. RITONAVIR [Concomitant]
     Indication: ANTIVIRAL TREATMENT
     Route: 065
  3. ATAZANAVIR [Concomitant]
     Indication: ANTIVIRAL TREATMENT
     Route: 065
  4. TRUVADA [Concomitant]
     Indication: ANTIVIRAL TREATMENT
     Route: 065
  5. OLANZAPINE [Concomitant]
     Indication: BIPOLAR DISORDER
     Route: 048
  6. LITHIUM [Concomitant]
     Indication: BIPOLAR DISORDER
     Dosage: 600MG DAILY
     Route: 048
  7. VENLAFAXINE [Concomitant]
     Indication: BIPOLAR DISORDER
     Dosage: 200MG DAILY
     Route: 048
  8. DIVALPROEX [Concomitant]
     Dosage: 750MG DAILY
     Route: 048
  9. BUPRENORPHINE W/NALOXONE [Concomitant]
     Dosage: 24MG DAILY
     Route: 048

REACTIONS (4)
  - Intentional drug misuse [Unknown]
  - Drug dependence [Unknown]
  - Overdose [Unknown]
  - Drug withdrawal syndrome [Unknown]
